FAERS Safety Report 21111351 (Version 2)
Quarter: 2022Q3

REPORT INFORMATION
  Report Type: Spontaneous
  Country: CN (occurrence: None)
  Receive Date: 20220721
  Receipt Date: 20220804
  Transmission Date: 20221026
  Serious: Yes (Life-Threatening, Other)
  Sender: FDA-Public Use
  Company Number: CN-ROCHE-3142318

PATIENT
  Age: 3 Year
  Sex: Male

DRUGS (3)
  1. RISDIPLAM [Suspect]
     Active Substance: RISDIPLAM
     Indication: Spinal muscular atrophy
     Route: 065
     Dates: start: 20220627, end: 20220702
  2. RISDIPLAM [Suspect]
     Active Substance: RISDIPLAM
     Route: 065
     Dates: start: 20220714, end: 20220716
  3. SPINRAZA [Concomitant]
     Active Substance: NUSINERSEN

REACTIONS (3)
  - Muscle twitching [Unknown]
  - Tremor [Unknown]
  - Epilepsy [Recovering/Resolving]

NARRATIVE: CASE EVENT DATE: 20220702
